FAERS Safety Report 5444477-1 (Version None)
Quarter: 2007Q3

REPORT INFORMATION
  Report Type: 
  Country: None (occurrence: None)
  Receive Date: 20070830
  Receipt Date: 20070821
  Transmission Date: 20080115
  Serious: Yes (Other)
  Sender: FDA-Public Use
  Company Number: CHPA2007US08940

PATIENT

DRUGS (1)
  1. THERAFLU DAYTIME SEVERE COLD NO PSE CAPLET (NCH)(PARACETAMOL, DEXTROME [Suspect]
     Indication: NASOPHARYNGITIS
     Dosage: ONCE/SINGLE, ORAL
     Route: 048
     Dates: start: 20070821

REACTIONS (2)
  - DIZZINESS [None]
  - SYNCOPE [None]
